FAERS Safety Report 24957208 (Version 1)
Quarter: 2025Q1

REPORT INFORMATION
  Report Type: Report from Study
  Country: US (occurrence: US)
  Receive Date: 20250211
  Receipt Date: 20250211
  Transmission Date: 20250409
  Serious: Yes (Other)
  Sender: JOHNSON AND JOHNSON
  Company Number: US-JNJFOC-20250201292

PATIENT
  Age: 66 Year

DRUGS (2)
  1. SPRAVATO [Suspect]
     Active Substance: ESKETAMINE
     Indication: Depression
     Route: 045
     Dates: start: 20241209, end: 20241209
  2. SPRAVATO [Suspect]
     Active Substance: ESKETAMINE
     Route: 045
     Dates: start: 20241211, end: 20250127

REACTIONS (9)
  - Hypertension [Unknown]
  - Headache [Not Recovered/Not Resolved]
  - Insomnia [Unknown]
  - Dissociation [Unknown]
  - Dizziness [Unknown]
  - Sedation [Unknown]
  - Lethargy [Unknown]
  - Loss of personal independence in daily activities [Unknown]
  - Dysarthria [Unknown]

NARRATIVE: CASE EVENT DATE: 20250127
